FAERS Safety Report 24311717 (Version 1)
Quarter: 2024Q3

REPORT INFORMATION
  Report Type: Spontaneous
  Country: HU (occurrence: HU)
  Receive Date: 20240912
  Receipt Date: 20240912
  Transmission Date: 20241017
  Serious: Yes (Life-Threatening, Hospitalization, Other)
  Sender: CHIESI
  Company Number: None

PATIENT
  Age: 31 Year
  Sex: Male

DRUGS (17)
  1. TOBRAMYCIN [Suspect]
     Active Substance: TOBRAMYCIN\TOBRAMYCIN SULFATE
     Indication: Pneumonia
     Dosage: UNK
  2. TOBRAMYCIN [Suspect]
     Active Substance: TOBRAMYCIN\TOBRAMYCIN SULFATE
     Indication: Endocarditis staphylococcal
  3. TOBRAMYCIN [Suspect]
     Active Substance: TOBRAMYCIN\TOBRAMYCIN SULFATE
     Indication: Staphylococcal sepsis
  4. TOBRAMYCIN [Suspect]
     Active Substance: TOBRAMYCIN\TOBRAMYCIN SULFATE
     Indication: Pneumonia staphylococcal
  5. RIFAMPIN [Suspect]
     Active Substance: RIFAMPIN
     Indication: Endocarditis staphylococcal
     Dosage: UNK, QD
     Route: 048
  6. RIFAMPIN [Suspect]
     Active Substance: RIFAMPIN
     Indication: Pneumonia staphylococcal
     Dosage: UNK
  7. VANCOMYCIN HYDROCHLORIDE [Suspect]
     Active Substance: VANCOMYCIN HYDROCHLORIDE
     Indication: Endocarditis staphylococcal
     Dosage: UNK, QD
     Route: 042
  8. VANCOMYCIN HYDROCHLORIDE [Suspect]
     Active Substance: VANCOMYCIN HYDROCHLORIDE
     Indication: Staphylococcal sepsis
     Dosage: UNK
  9. VANCOMYCIN HYDROCHLORIDE [Suspect]
     Active Substance: VANCOMYCIN HYDROCHLORIDE
     Indication: Pneumonia staphylococcal
     Dosage: UNK
  10. METRONIDAZOLE [Concomitant]
     Active Substance: METRONIDAZOLE
     Indication: Endocarditis staphylococcal
     Dosage: UNK
  11. METRONIDAZOLE [Concomitant]
     Active Substance: METRONIDAZOLE
     Indication: Pneumonia
     Dosage: UNK
  12. METRONIDAZOLE [Concomitant]
     Active Substance: METRONIDAZOLE
     Indication: Staphylococcal sepsis
     Dosage: UNK
  13. METRONIDAZOLE [Concomitant]
     Active Substance: METRONIDAZOLE
     Indication: Pneumonia staphylococcal
     Dosage: UNK
  14. CEFTAZIDIME [Concomitant]
     Active Substance: CEFTAZIDIME
     Indication: Pneumonia
     Dosage: UNK
  15. LINEZOLID [Concomitant]
     Active Substance: LINEZOLID
     Indication: Endocarditis staphylococcal
     Dosage: UNK
  16. LINEZOLID [Concomitant]
     Active Substance: LINEZOLID
     Indication: Staphylococcal sepsis
     Dosage: UNK
  17. LINEZOLID [Concomitant]
     Active Substance: LINEZOLID
     Indication: Pneumonia staphylococcal
     Dosage: UNK

REACTIONS (1)
  - Drug ineffective [Recovered/Resolved]
